FAERS Safety Report 12312758 (Version 1)
Quarter: 2016Q2

REPORT INFORMATION
  Report Type: Spontaneous
  Country: US (occurrence: None)
  Receive Date: 20160427
  Receipt Date: 20160427
  Transmission Date: 20160815
  Serious: Yes (Other)
  Sender: FDA-Public Use
  Company Number: None

PATIENT
  Age: 36 Year
  Sex: Female
  Weight: 128.37 kg

DRUGS (1)
  1. NEXPLANON [Suspect]
     Active Substance: ETONOGESTREL
     Route: 058

REACTIONS (6)
  - Anger [None]
  - Back pain [None]
  - Arthralgia [None]
  - Weight increased [None]
  - Dyspnoea [None]
  - Mood swings [None]

NARRATIVE: CASE EVENT DATE: 20010101
